FAERS Safety Report 7560951-6 (Version None)
Quarter: 2011Q2

REPORT INFORMATION
  Report Type: 
  Country: None (occurrence: None)
  Receive Date: 20110621
  Receipt Date: 20110607
  Transmission Date: 20111010
  Serious: Yes (Other)
  Sender: FDA-Public Use
  Company Number: US-JNJFOC-20110405056

PATIENT
  Age: 24 Year
  Sex: Female
  Weight: 68.49 kg

DRUGS (1)
  1. REMICADE [Suspect]
     Indication: CROHN'S DISEASE
     Route: 042

REACTIONS (3)
  - FREQUENT BOWEL MOVEMENTS [None]
  - INFECTIOUS MONONUCLEOSIS [None]
  - ABDOMINAL PAIN [None]
